FAERS Safety Report 12257367 (Version 1)
Quarter: 2016Q2

REPORT INFORMATION
  Report Type: Spontaneous
  Country: PL (occurrence: PL)
  Receive Date: 20160412
  Receipt Date: 20160412
  Transmission Date: 20160815
  Serious: Yes (Other)
  Sender: FDA-Public Use
  Company Number: PHHY2016PL045019

PATIENT
  Age: 49 Year
  Sex: Female

DRUGS (9)
  1. ALVESCO [Suspect]
     Active Substance: CICLESONIDE
     Indication: ASTHMA
     Dosage: 160 UG,
     Route: 055
  2. ALVESCO [Suspect]
     Active Substance: CICLESONIDE
     Dosage: 320 UG, BID
     Route: 055
  3. PROMONTA [Suspect]
     Active Substance: MONTELUKAST SODIUM
     Indication: ASTHMA
     Dosage: 10 MG, QD
     Route: 065
  4. ALVESCO [Suspect]
     Active Substance: CICLESONIDE
     Dosage: 480 UG, BID
     Route: 065
  5. ESTROFEM//ESTRADIOL [Concomitant]
     Indication: PRODUCT USED FOR UNKNOWN INDICATION
     Route: 065
  6. ENCORTON [Concomitant]
     Active Substance: PREDNISONE
     Indication: ASTHMA
     Dosage: 60 MG, QD
     Route: 065
  7. METYPRED ^ORION^ [Concomitant]
     Indication: ASTHMA
     Dosage: 32 MG, QD
     Route: 065
  8. FORADIL [Suspect]
     Active Substance: FORMOTEROL FUMARATE
     Indication: ASTHMA
     Dosage: 12 UG, BID
     Route: 055
  9. XOLAIR [Suspect]
     Active Substance: OMALIZUMAB
     Indication: ASTHMA
     Dosage: 300 MG, QMO
     Route: 058
     Dates: start: 201401

REACTIONS (14)
  - Lacrimation increased [Unknown]
  - Menorrhagia [Unknown]
  - Erythema migrans [Unknown]
  - Product use issue [Unknown]
  - Hydrocephalus [Unknown]
  - Rhinorrhoea [Unknown]
  - Dyspnoea [Recovering/Resolving]
  - Normochromic normocytic anaemia [Recovered/Resolved]
  - Headache [Not Recovered/Not Resolved]
  - Ovarian enlargement [Unknown]
  - Middle insomnia [Recovering/Resolving]
  - Uterine leiomyoma [Unknown]
  - Wheezing [Recovering/Resolving]
  - Migraine [Unknown]
